FAERS Safety Report 18148432 (Version 5)
Quarter: 2025Q2

REPORT INFORMATION
  Report Type: Spontaneous
  Country: IT (occurrence: IT)
  Receive Date: 20200814
  Receipt Date: 20250416
  Transmission Date: 20250716
  Serious: Yes (Hospitalization, Other)
  Sender: AUROBINDO
  Company Number: IT-STADA-204832

PATIENT
  Age: 10 Year
  Sex: Female
  Weight: 23 kg

DRUGS (24)
  1. ARIPIPRAZOLE [Suspect]
     Active Substance: ARIPIPRAZOLE
     Indication: Sleep disorder
     Dosage: 0.3 MILLIGRAM/KILOGRAM, ONCE A DAY (3 MG/KG DAILY)
     Route: 065
  2. ARIPIPRAZOLE [Suspect]
     Active Substance: ARIPIPRAZOLE
     Indication: Anxiety
  3. ARIPIPRAZOLE [Suspect]
     Active Substance: ARIPIPRAZOLE
     Indication: Depression
  4. ALPRAZOLAM [Suspect]
     Active Substance: ALPRAZOLAM
     Indication: Anxiety
     Dosage: 0.01 MILLIGRAM/KILOGRAM, ONCE A DAY (01 MG/KG DAILY)
     Route: 065
  5. ALPRAZOLAM [Suspect]
     Active Substance: ALPRAZOLAM
     Indication: Sleep disorder
  6. ALPRAZOLAM [Suspect]
     Active Substance: ALPRAZOLAM
     Indication: Depression
  7. CETIRIZINE [Suspect]
     Active Substance: CETIRIZINE HYDROCHLORIDE
     Indication: Pruritus
     Dosage: 1 MILLIGRAM/KILOGRAM, ONCE A DAY
     Route: 065
  8. DIAZEPAM [Suspect]
     Active Substance: DIAZEPAM
     Indication: Sleep disorder
     Route: 065
  9. GABAPENTIN [Suspect]
     Active Substance: GABAPENTIN
     Indication: Pain
     Dosage: 25 MILLIGRAM/KILOGRAM, ONCE A DAY
     Route: 065
  10. IBUPROFEN [Suspect]
     Active Substance: IBUPROFEN
     Indication: Pain
     Route: 065
  11. DEXMEDETOMIDINE [Suspect]
     Active Substance: DEXMEDETOMIDINE
     Indication: Sleep disorder
     Route: 045
  12. DEXMEDETOMIDINE [Suspect]
     Active Substance: DEXMEDETOMIDINE
     Dosage: UNK, ONCE A DAY
     Route: 050
  13. MELATONIN [Suspect]
     Active Substance: MELATONIN
     Indication: Sleep disorder
     Dosage: 0.05 MILLIGRAM/KILOGRAM, ONCE A DAY (05 MG/KG DAILY)
     Route: 065
  14. NIAPRAZINE [Suspect]
     Active Substance: NIAPRAZINE
     Indication: Sleep disorder
     Dosage: 1 MILLIGRAM/KILOGRAM, ONCE A DAY (1 MG/KG DAILY)
     Route: 065
  15. METAMIZOLE [Suspect]
     Active Substance: METAMIZOLE
     Indication: Pain
     Dosage: 20 MILLIGRAM/KILOGRAM, ONCE A DAY (20 MG/KG DAILY)
     Route: 065
  16. TRAMADOL [Suspect]
     Active Substance: TRAMADOL
     Indication: Pain
     Dosage: 6 MILLIGRAM/KILOGRAM, ONCE A DAY (6 MG/KG DAILY)
     Route: 065
  17. TRAMADOL [Suspect]
     Active Substance: TRAMADOL
     Route: 065
  18. ACETAMINOPHEN [Suspect]
     Active Substance: ACETAMINOPHEN
     Indication: Pain
     Route: 065
  19. CHLORPHENIRAMINE MALEATE [Suspect]
     Active Substance: CHLORPHENIRAMINE MALEATE
     Indication: Pruritus
     Dosage: 0.2 MILLIGRAM/KILOGRAM, ONCE A DAY (2 MG/KG DAILY)
     Route: 065
  20. TRAZODONE [Suspect]
     Active Substance: TRAZODONE HYDROCHLORIDE
     Indication: Anxiety
     Dosage: 1 MILLIGRAM/KILOGRAM, ONCE A DAY (1 MG/KG DAILY)
     Route: 065
  21. TRAZODONE [Suspect]
     Active Substance: TRAZODONE HYDROCHLORIDE
     Indication: Depression
  22. TRAZODONE [Suspect]
     Active Substance: TRAZODONE HYDROCHLORIDE
     Indication: Sleep disorder
  23. KETAMINE [Concomitant]
     Active Substance: KETAMINE
     Indication: Sedation
     Dosage: 3.5 MILLIGRAM/KILOGRAM, ONCE A DAY (3.5 MG/KG DAILY)
     Route: 065
  24. PROPOFOL [Concomitant]
     Active Substance: PROPOFOL
     Indication: Sedation
     Dosage: 5 MILLIGRAM/KILOGRAM, ONCE A DAY (3 TIMES)
     Route: 065

REACTIONS (10)
  - Paradoxical insomnia [Recovering/Resolving]
  - Agitation [Unknown]
  - Sleep disorder [Unknown]
  - Paradoxical drug reaction [Unknown]
  - Irritability [Unknown]
  - Quality of life decreased [Unknown]
  - Fatigue [Unknown]
  - Confusional arousal [Unknown]
  - Off label use [Unknown]
  - Drug ineffective [Unknown]
